FAERS Safety Report 23853254 (Version 3)
Quarter: 2025Q1

REPORT INFORMATION
  Report Type: Report from Study
  Country: CA (occurrence: CA)
  Receive Date: 20240514
  Receipt Date: 20250115
  Transmission Date: 20250409
  Serious: Yes (Other)
  Sender: GLAXOSMITHKLINE
  Company Number: CA-GLAXOSMITHKLINE-CA2024023887

PATIENT

DRUGS (2)
  1. MEPOLIZUMAB [Suspect]
     Active Substance: MEPOLIZUMAB
     Indication: Asthma
     Dosage: 100 MG, Q4W
     Route: 058
     Dates: start: 20240312
  2. HYDROCORTISONE BUTYRATE [Concomitant]
     Active Substance: HYDROCORTISONE BUTYRATE
     Indication: Product used for unknown indication
     Dates: start: 202404

REACTIONS (6)
  - Urinary retention [Recovered/Resolved]
  - Constipation [Recovered/Resolved]
  - Dermatitis acneiform [Recovering/Resolving]
  - Pruritus [Not Recovered/Not Resolved]
  - Dyspnoea exertional [Unknown]
  - Off label use [Unknown]
